FAERS Safety Report 9166988 (Version 2)
Quarter: 2013Q1

REPORT INFORMATION
  Report Type: Spontaneous
  Country: JP (occurrence: JP)
  Receive Date: 20130317
  Receipt Date: 20130327
  Transmission Date: 20140127
  Serious: Yes (Other)
  Sender: FDA-Public Use
  Company Number: JP-TEVA-391977ISR

PATIENT
  Age: 22 Year
  Sex: Female

DRUGS (2)
  1. CISPLATIN [Suspect]
     Indication: NEOPLASM MALIGNANT
  2. ETOPOSIDE [Suspect]
     Indication: NEOPLASM MALIGNANT

REACTIONS (1)
  - Thymus enlargement [Unknown]
